FAERS Safety Report 23171202 (Version 2)
Quarter: 2023Q4

REPORT INFORMATION
  Report Type: Spontaneous
  Country: CA (occurrence: None)
  Receive Date: 20231110
  Receipt Date: 20231122
  Transmission Date: 20240109
  Serious: Yes (Life-Threatening, Other)
  Sender: FDA-Public Use
  Company Number: 2023A255751

PATIENT
  Age: 62 Year
  Sex: Female

DRUGS (3)
  1. BREZTRI [Suspect]
     Active Substance: BUDESONIDE\FORMOTEROL\GLYCOPYRROLATE
     Indication: Chronic obstructive pulmonary disease
     Dosage: 182 UG
     Route: 055
  2. SYMBICORT [Suspect]
     Active Substance: BUDESONIDE\FORMOTEROL FUMARATE DIHYDRATE
     Route: 055
  3. VENTOLIN [Concomitant]
     Active Substance: ALBUTEROL SULFATE

REACTIONS (18)
  - Pneumonia [Unknown]
  - COVID-19 [Unknown]
  - Choking [Not Recovered/Not Resolved]
  - Wheezing [Not Recovered/Not Resolved]
  - Chronic obstructive pulmonary disease [Not Recovered/Not Resolved]
  - Throat irritation [Recovering/Resolving]
  - Candida infection [Recovered/Resolved]
  - Pulmonary function test decreased [Unknown]
  - Illness [Unknown]
  - Therapeutic product effect delayed [Unknown]
  - Discontinued product administered [Unknown]
  - Drug ineffective [Unknown]
  - Angular cheilitis [Unknown]
  - Muscle spasms [Unknown]
  - Bronchitis [Unknown]
  - Oxygen saturation increased [Unknown]
  - Wheezing [Unknown]
  - Overdose [Unknown]
